FAERS Safety Report 22047330 (Version 1)
Quarter: 2023Q1

REPORT INFORMATION
  Report Type: Spontaneous
  Country: US (occurrence: US)
  Receive Date: 20230301
  Receipt Date: 20230301
  Transmission Date: 20230417
  Serious: No
  Sender: FDA-Public Use
  Company Number: US-CHI-000119

PATIENT
  Age: 61 Year
  Sex: Female

DRUGS (1)
  1. FULVESTRANT [Suspect]
     Active Substance: FULVESTRANT
     Indication: Breast cancer
     Route: 030
     Dates: start: 20230216

REACTIONS (2)
  - Cough [Recovered/Resolved]
  - Oropharyngeal discomfort [Unknown]
